FAERS Safety Report 19904206 (Version 2)
Quarter: 2022Q1

REPORT INFORMATION
  Report Type: Spontaneous
  Country: US (occurrence: US)
  Receive Date: 20210930
  Receipt Date: 20220302
  Transmission Date: 20220423
  Serious: No
  Sender: FDA-Public Use
  Company Number: US-009507513-2109USA007367

PATIENT
  Age: 70 Year
  Sex: Female

DRUGS (4)
  1. KEYTRUDA [Suspect]
     Active Substance: PEMBROLIZUMAB
     Indication: Endometrial cancer
  2. LENVATINIB MESYLATE [Suspect]
     Active Substance: LENVATINIB MESYLATE
     Indication: Endometrial cancer
     Dosage: 14 MILLIGRAM, QD
     Route: 048
     Dates: start: 2021, end: 2021
  3. LENVATINIB MESYLATE [Suspect]
     Active Substance: LENVATINIB MESYLATE
     Dosage: 10 MILLIGRAM
     Route: 048
     Dates: start: 2021, end: 2021
  4. LENVATINIB MESYLATE [Suspect]
     Active Substance: LENVATINIB MESYLATE
     Dosage: 8 MILLIGRAM, QD
     Route: 048
     Dates: start: 2021

REACTIONS (11)
  - Blood pressure increased [Not Recovered/Not Resolved]
  - Blood sodium decreased [Recovered/Resolved]
  - Thyroid disorder [Unknown]
  - Drug intolerance [Recovered/Resolved]
  - Stomatitis [Recovered/Resolved]
  - Tongue discomfort [Recovered/Resolved]
  - Glossodynia [Recovered/Resolved]
  - Headache [Recovered/Resolved]
  - Increased tendency to bruise [Recovered/Resolved]
  - Dysphonia [Recovered/Resolved]
  - Product use in unapproved indication [Unknown]

NARRATIVE: CASE EVENT DATE: 20210101
